FAERS Safety Report 5310157-6 (Version None)
Quarter: 2007Q2

REPORT INFORMATION
  Report Type: 
  Country: None (occurrence: None)
  Receive Date: 20070427
  Receipt Date: 20070416
  Transmission Date: 20071010
  Serious: Yes (Other)
  Sender: FDA-Public Use
  Company Number: US-JNJFOC-20070305880

PATIENT
  Sex: Male
  Weight: 89.81 kg

DRUGS (12)
  1. LEVAQUIN [Suspect]
     Indication: DRUG USE FOR UNKNOWN INDICATION
  2. ASPIRIN [Concomitant]
     Route: 065
  3. ALPHAGAN [Concomitant]
     Route: 047
  4. SIMVASTATIN [Concomitant]
     Route: 065
  5. HYDROCHLOROTHIAZIDE [Concomitant]
     Route: 065
  6. ATENOLOL [Concomitant]
     Route: 065
  7. LISINOPRIL [Concomitant]
     Route: 065
  8. ZETIA [Concomitant]
     Route: 065
  9. COUMADIN [Concomitant]
     Route: 065
  10. DARVOCET [Concomitant]
     Route: 065
  11. AMICAR [Concomitant]
     Route: 065
  12. BACTRIM [Concomitant]
     Route: 065

REACTIONS (2)
  - DISSEMINATED INTRAVASCULAR COAGULATION [None]
  - HAEMOLYTIC ANAEMIA [None]
